FAERS Safety Report 21656450 (Version 1)
Quarter: 2022Q4

REPORT INFORMATION
  Report Type: Spontaneous
  Country: US (occurrence: US)
  Receive Date: 20221129
  Receipt Date: 20221129
  Transmission Date: 20230113
  Serious: No
  Sender: FDA-Public Use
  Company Number: US-PFIZER INC-202201331867

PATIENT
  Age: 73 Year
  Sex: Male
  Weight: 83.91 kg

DRUGS (7)
  1. PAXLOVID [Suspect]
     Active Substance: NIRMATRELVIR\RITONAVIR
     Indication: COVID-19 treatment
     Dosage: 3 PILLS IN THE MORNING AND 3 PILLS AT NIGHT, BY MOUTH
     Route: 048
     Dates: start: 20221123
  2. METOPROLOL [Concomitant]
     Active Substance: METOPROLOL
     Dosage: TWICE A DAY
  3. LOSARTAN [Concomitant]
     Active Substance: LOSARTAN
     Indication: Blood pressure measurement
     Dosage: UNK
  4. VITAMIN D3 [Concomitant]
     Active Substance: CHOLECALCIFEROL
     Dosage: UNK
  5. ASPIRIN [Concomitant]
     Active Substance: ASPIRIN
     Dosage: UNK
  6. HUMALOG [Concomitant]
     Active Substance: INSULIN LISPRO
     Dosage: INJECTION 3 TIMES A DAY
  7. LANTUS [Concomitant]
     Active Substance: INSULIN GLARGINE
     Dosage: ONCE DAILY INJECTION
     Dates: start: 20221123

REACTIONS (2)
  - Diarrhoea [Recovered/Resolved]
  - Decreased appetite [Unknown]

NARRATIVE: CASE EVENT DATE: 20221124
